FAERS Safety Report 23651521 (Version 1)
Quarter: 2024Q1

REPORT INFORMATION
  Report Type: Report from Study
  Country: US (occurrence: US)
  Receive Date: 20240320
  Receipt Date: 20240320
  Transmission Date: 20240410
  Serious: Yes (Other)
  Sender: FDA-Public Use
  Company Number: US-ABBVIE-5683474

PATIENT
  Sex: Female

DRUGS (1)
  1. HUMIRA [Suspect]
     Active Substance: ADALIMUMAB
     Indication: Product used for unknown indication
     Route: 058
     Dates: start: 20220108, end: 20220122

REACTIONS (6)
  - Hernia [Unknown]
  - Adverse drug reaction [Unknown]
  - Ocular hypertension [Unknown]
  - Iritis [Unknown]
  - Depression [Unknown]
  - Hypercholesterolaemia [Unknown]
